FAERS Safety Report 7434289-1 (Version None)
Quarter: 2011Q2

REPORT INFORMATION
  Report Type: 
  Country: None (occurrence: None)
  Receive Date: 20110425
  Receipt Date: 20110419
  Transmission Date: 20111010
  Serious: No
  Sender: FDA-Public Use
  Company Number: US-PFIZER INC-2011085973

PATIENT
  Sex: Female
  Weight: 75.737 kg

DRUGS (2)
  1. PREMPRO [Suspect]
     Indication: MENOPAUSAL SYMPTOMS
     Dosage: 0.625/2.5MG ORAL TABLET ONCE A DAY
     Route: 048
     Dates: start: 20090101, end: 20110329
  2. NEXIUM [Concomitant]
     Indication: GASTROOESOPHAGEAL REFLUX DISEASE
     Dosage: UNK

REACTIONS (3)
  - FEELING ABNORMAL [None]
  - MOOD ALTERED [None]
  - BLOOD OESTROGEN DECREASED [None]
